FAERS Safety Report 5045713-6 (Version None)
Quarter: 2006Q2

REPORT INFORMATION
  Report Type: 
  Country: None (occurrence: None)
  Receive Date: 20060601
  Receipt Date: 20060221
  Transmission Date: 20061013
  Serious: No
  Sender: FDA-Public Use
  Company Number: US200602004963

PATIENT
  Age: 55 Year
  Sex: Female

DRUGS (1)
  1. CYMBALTA [Suspect]
     Dosage: 60 MG, CAPSULE, ORAL
     Route: 048
     Dates: start: 20050901, end: 20051201

REACTIONS (2)
  - BLOOD PRESSURE INCREASED [None]
  - PAIN [None]
